FAERS Safety Report 25675067 (Version 1)
Quarter: 2025Q3

REPORT INFORMATION
  Report Type: Spontaneous
  Country: TW (occurrence: TW)
  Receive Date: 20250813
  Receipt Date: 20250813
  Transmission Date: 20251020
  Serious: Yes (Other)
  Sender: AMGEN
  Company Number: TW-AMGEN-TWNSP2025156085

PATIENT

DRUGS (25)
  1. BEVACIZUMAB [Suspect]
     Active Substance: BEVACIZUMAB
     Indication: Glioma
     Route: 065
  2. BEVACIZUMAB [Suspect]
     Active Substance: BEVACIZUMAB
     Indication: Glioblastoma
  3. BEVACIZUMAB [Suspect]
     Active Substance: BEVACIZUMAB
     Indication: Astrocytoma malignant
  4. BEVACIZUMAB [Suspect]
     Active Substance: BEVACIZUMAB
     Indication: Malignant oligodendroglioma
  5. BEVACIZUMAB [Suspect]
     Active Substance: BEVACIZUMAB
     Indication: Oligoastrocytoma
  6. ETOPOSIDE [Suspect]
     Active Substance: ETOPOSIDE
     Indication: Glioma
     Route: 040
  7. ETOPOSIDE [Suspect]
     Active Substance: ETOPOSIDE
     Indication: Astrocytoma malignant
  8. ETOPOSIDE [Suspect]
     Active Substance: ETOPOSIDE
     Indication: Glioblastoma
  9. ETOPOSIDE [Suspect]
     Active Substance: ETOPOSIDE
     Indication: Malignant oligodendroglioma
  10. ETOPOSIDE [Suspect]
     Active Substance: ETOPOSIDE
     Indication: Oligoastrocytoma
  11. VINBLASTINE [Suspect]
     Active Substance: VINBLASTINE
     Indication: Glioma
     Route: 040
  12. VINBLASTINE [Suspect]
     Active Substance: VINBLASTINE
     Indication: Glioblastoma
  13. VINBLASTINE [Suspect]
     Active Substance: VINBLASTINE
     Indication: Astrocytoma malignant
  14. VINBLASTINE [Suspect]
     Active Substance: VINBLASTINE
     Indication: Malignant oligodendroglioma
  15. VINBLASTINE [Suspect]
     Active Substance: VINBLASTINE
     Indication: Oligoastrocytoma
  16. CYCLOPHOSPHAMIDE [Suspect]
     Active Substance: CYCLOPHOSPHAMIDE
     Indication: Glioma
     Route: 040
  17. CYCLOPHOSPHAMIDE [Suspect]
     Active Substance: CYCLOPHOSPHAMIDE
     Indication: Glioblastoma
  18. CYCLOPHOSPHAMIDE [Suspect]
     Active Substance: CYCLOPHOSPHAMIDE
     Indication: Astrocytoma malignant
  19. CYCLOPHOSPHAMIDE [Suspect]
     Active Substance: CYCLOPHOSPHAMIDE
     Indication: Malignant oligodendroglioma
  20. CYCLOPHOSPHAMIDE [Suspect]
     Active Substance: CYCLOPHOSPHAMIDE
     Indication: Oligoastrocytoma
  21. CARBOPLATIN [Suspect]
     Active Substance: CARBOPLATIN
     Indication: Glioma
     Route: 040
  22. CARBOPLATIN [Suspect]
     Active Substance: CARBOPLATIN
     Indication: Glioblastoma
  23. CARBOPLATIN [Suspect]
     Active Substance: CARBOPLATIN
     Indication: Astrocytoma malignant
  24. CARBOPLATIN [Suspect]
     Active Substance: CARBOPLATIN
     Indication: Malignant oligodendroglioma
  25. CARBOPLATIN [Suspect]
     Active Substance: CARBOPLATIN
     Indication: Oligoastrocytoma

REACTIONS (24)
  - Renal impairment [Unknown]
  - Pneumonia [Unknown]
  - Pancytopenia [Unknown]
  - Hyperkalaemia [Unknown]
  - Hypokalaemia [Unknown]
  - Thrombocytopenia [Unknown]
  - Neutropenia [Unknown]
  - Febrile neutropenia [Unknown]
  - Hypernatraemia [Unknown]
  - Malaise [Unknown]
  - Aspartate aminotransferase abnormal [Unknown]
  - Alanine aminotransferase abnormal [Unknown]
  - Dizziness [Unknown]
  - Alopecia [Unknown]
  - Anaemia [Unknown]
  - Stomatitis [Unknown]
  - Hyponatraemia [Unknown]
  - Vomiting [Unknown]
  - Decreased appetite [Unknown]
  - Diarrhoea [Unknown]
  - Constipation [Unknown]
  - Urinary tract infection [Unknown]
  - Nausea [Unknown]
  - Off label use [Unknown]
